FAERS Safety Report 6959162-4 (Version None)
Quarter: 2010Q3

REPORT INFORMATION
  Report Type: 
  Country: None (occurrence: None)
  Receive Date: 20100831
  Receipt Date: 20100818
  Transmission Date: 20110219
  Serious: Yes (Hospitalization)
  Sender: FDA-Public Use
  Company Number: PHHY2010US44594

PATIENT
  Age: 73 Year
  Sex: Female

DRUGS (3)
  1. RECLAST [Suspect]
     Indication: OSTEOPOROSIS
     Dosage: 5 MG
     Route: 042
     Dates: start: 20100625
  2. ASPIRIN [Concomitant]
     Indication: ATRIAL FIBRILLATION
     Dosage: UNK
     Route: 048
  3. LOPRESSOR [Concomitant]
     Indication: ATRIAL FIBRILLATION
     Route: 048

REACTIONS (8)
  - ACUTE MYOCARDIAL INFARCTION [None]
  - ANGINA PECTORIS [None]
  - ATRIAL FIBRILLATION [None]
  - CHEST DISCOMFORT [None]
  - DYSPNOEA [None]
  - PAIN IN EXTREMITY [None]
  - PALPITATIONS [None]
  - TROPONIN INCREASED [None]
